FAERS Safety Report 12625230 (Version 10)
Quarter: 2018Q2

REPORT INFORMATION
  Report Type: Report from Study
  Country: US (occurrence: US)
  Receive Date: 20160805
  Receipt Date: 20180522
  Transmission Date: 20180711
  Serious: No
  Sender: FDA-Public Use
  Company Number: PHEH2016US019493

PATIENT
  Sex: Female

DRUGS (1)
  1. AFINITOR [Suspect]
     Active Substance: EVEROLIMUS
     Indication: ANGIOMYOLIPOMA
     Dosage: 2.5 MG, QD
     Route: 048
     Dates: start: 20130513, end: 20160928

REACTIONS (9)
  - Vitamin D decreased [Not Recovered/Not Resolved]
  - Renal disorder [Unknown]
  - Fatigue [Unknown]
  - Tooth fracture [Unknown]
  - Gastrointestinal disorder [Unknown]
  - Ear infection [Unknown]
  - Migraine [Not Recovered/Not Resolved]
  - Malaise [Not Recovered/Not Resolved]
  - Hiccups [Unknown]
